FAERS Safety Report 5805173-1 (Version None)
Quarter: 2008Q3

REPORT INFORMATION
  Report Type: 
  Country: None (occurrence: None)
  Receive Date: 20080707
  Receipt Date: 20080626
  Transmission Date: 20090109
  Serious: Yes (Other)
  Sender: FDA-Public Use
  Company Number: 2008AL003158

PATIENT
  Age: 89 Year
  Sex: Female
  Weight: 45.3597 kg

DRUGS (6)
  1. DIGOXIN [Suspect]
     Indication: CARDIAC FAILURE CONGESTIVE
     Dosage: 0.125 MG, DAILY PO
     Route: 048
     Dates: start: 20070501, end: 20080522
  2. METOPROLOL [Concomitant]
  3. DOXAZOSIN MESYLATE [Concomitant]
  4. NABUMETONE [Concomitant]
  5. AMLODIPINE BESYLATE [Concomitant]
  6. HYDROCHLOROTHIAZIDE [Concomitant]

REACTIONS (4)
  - ANGINA PECTORIS [None]
  - DYSPNOEA [None]
  - INCONTINENCE [None]
  - RENAL FAILURE [None]
